FAERS Safety Report 21366129 (Version 1)
Quarter: 2022Q3

REPORT INFORMATION
  Report Type: Report from Study
  Country: US (occurrence: US)
  Receive Date: 20220922
  Receipt Date: 20220922
  Transmission Date: 20221027
  Serious: Yes (Other)
  Sender: FDA-Public Use
  Company Number: US-SEATTLE GENETICS-2022SGN08164

PATIENT
  Sex: Female
  Weight: 49.1 kg

DRUGS (17)
  1. TUCATINIB [Suspect]
     Active Substance: TUCATINIB
     Indication: Breast cancer metastatic
     Dosage: 300 MG, BID
     Route: 048
     Dates: start: 202201
  2. TUCATINIB [Suspect]
     Active Substance: TUCATINIB
     Dosage: 250 MG, BID
     Route: 048
     Dates: start: 202203
  3. CAPECITABINE [Suspect]
     Active Substance: CAPECITABINE
     Indication: Breast cancer metastatic
     Dosage: 1000 MG, BID, DAYS 1-14, EVERY 21 DAYS
     Route: 048
  4. CAPECITABINE [Suspect]
     Active Substance: CAPECITABINE
     Dosage: 1500 MG BID, 14 DAYS, 7 DAYS OFF
     Route: 048
     Dates: start: 20220215
  5. TRASTUZUMAB [Suspect]
     Active Substance: TRASTUZUMAB
     Indication: Breast cancer metastatic
     Dosage: UNK
     Route: 065
     Dates: start: 20200716
  6. FAMOTIDINE [Concomitant]
     Active Substance: FAMOTIDINE
     Route: 065
  7. DENOSUMAB [Concomitant]
     Active Substance: DENOSUMAB
  8. CHOLECALCIFEROL [Concomitant]
     Active Substance: CHOLECALCIFEROL
     Dosage: 125 MCG, 1000 IU, DAILY
     Route: 048
     Dates: start: 20121119
  9. CANNABIS SATIVA SUBSP. INDICA TOP [Concomitant]
     Active Substance: CANNABIS SATIVA SUBSP. INDICA TOP
     Dosage: UNK
     Route: 065
     Dates: start: 2012
  10. CALCIUM CITRATE;VITAMIN D NOS [Concomitant]
     Dosage: 1000 MG
     Route: 048
     Dates: start: 20150730
  11. MAGNESIUM GLYCINATE [Concomitant]
     Active Substance: MAGNESIUM GLYCINATE
     Dosage: 400 MG
     Route: 065
     Dates: start: 20150730
  12. CETYLPYRIDINIUM CHLORIDE [Concomitant]
     Active Substance: CETYLPYRIDINIUM CHLORIDE
     Dosage: 15 ML 3 TIMES A DAY
     Route: 048
     Dates: start: 20220215
  13. POTASSIUM AND SODIUM PHOSPHATES [Concomitant]
     Dosage: 280-160-250 MG, MIX 1 PACKET WITH 2.5OZ (75ML) OF WATER OR JUICE, TAKE 1 PACKET 4 TIMES A DAY
     Route: 048
     Dates: start: 20220217
  14. PYRIDOXINE HYDROCHLORIDE [Concomitant]
     Active Substance: PYRIDOXINE HYDROCHLORIDE
     Dosage: 50 MG
     Route: 065
     Dates: start: 20150730
  15. LYSINE ACETATE [Concomitant]
     Active Substance: LYSINE ACETATE
     Dosage: PO DAILY
     Route: 048
     Dates: start: 20190219
  16. ASCORBIC ACID [Concomitant]
     Active Substance: ASCORBIC ACID
     Dosage: 500 MG, TID
     Route: 048
     Dates: start: 20161114
  17. MINERALS\VITAMINS [Concomitant]
     Active Substance: MINERALS\VITAMINS
     Route: 048

REACTIONS (11)
  - Metastases to liver [Unknown]
  - Metastases to bone [Unknown]
  - Hypokalaemia [Unknown]
  - Blister [Unknown]
  - Fatigue [Recovering/Resolving]
  - Urinary tract infection [Unknown]
  - Blood calcium decreased [Unknown]
  - Blood phosphorus decreased [Unknown]
  - Vomiting [Unknown]
  - Nausea [Not Recovered/Not Resolved]
  - Diarrhoea [Recovering/Resolving]
